FAERS Safety Report 9344847 (Version 5)
Quarter: 2014Q1

REPORT INFORMATION
  Report Type: Spontaneous
  Country: US (occurrence: US)
  Receive Date: 20130612
  Receipt Date: 20140310
  Transmission Date: 20141002
  Serious: Yes (Hospitalization)
  Sender: FDA-Public Use
  Company Number: US-GLAXOSMITHKLINE-A1026700A

PATIENT
  Sex: Male

DRUGS (1)
  1. FLOLAN [Suspect]
     Indication: PULMONARY ARTERIAL HYPERTENSION
     Dosage: 21NGKM CONTINUOUS
     Route: 042
     Dates: start: 20070122

REACTIONS (3)
  - Medical device complication [Unknown]
  - Catheter placement [Unknown]
  - Prostatic disorder [Unknown]
